FAERS Safety Report 13100419 (Version 1)
Quarter: 2017Q1

REPORT INFORMATION
  Report Type: Spontaneous
  Country: US (occurrence: US)
  Receive Date: 20170109
  Receipt Date: 20170109
  Transmission Date: 20170428
  Serious: Yes (Life-Threatening, Hospitalization, Other)
  Sender: FDA-Public Use
  Company Number: None

PATIENT
  Age: 61 Year
  Sex: Male
  Weight: 60.9 kg

DRUGS (11)
  1. EPHEDRINE. [Concomitant]
     Active Substance: EPHEDRINE
  2. PHYENLEPHERINE [Concomitant]
  3. ROCURONIUM [Concomitant]
     Active Substance: ROCURONIUM BROMIDE
  4. HYDROMORPHONE [Concomitant]
     Active Substance: HYDROMORPHONE
  5. SUGGAMADEX MERCK [Suspect]
     Active Substance: SUGAMMADEX
     Indication: NEUROMUSCULAR BLOCKADE
     Dosage: ?          OTHER FREQUENCY:ONCE;?
     Route: 040
     Dates: start: 20161118
  6. LIDOCAINE. [Concomitant]
     Active Substance: LIDOCAINE
  7. NITROUS [Concomitant]
     Active Substance: NITROUS OXIDE
  8. FENTANYL. [Concomitant]
     Active Substance: FENTANYL
  9. KETAMINE [Concomitant]
     Active Substance: KETAMINE
  10. PROPOFOL. [Concomitant]
     Active Substance: PROPOFOL
  11. SEVOFLURANE. [Concomitant]
     Active Substance: SEVOFLURANE

REACTIONS (4)
  - Hypotension [None]
  - Anaphylactic reaction [None]
  - Hypoxia [None]
  - Bronchospasm [None]

NARRATIVE: CASE EVENT DATE: 20161118
